FAERS Safety Report 8840961 (Version 2)
Quarter: 2012Q4

REPORT INFORMATION
  Report Type: 
  Country: US (occurrence: US)
  Receive Date: 20121015
  Receipt Date: 20121123
  Transmission Date: 20130627
  Serious: Yes (Other)
  Sender: FDA-Public Use
  Company Number: US-PFIZER INC-2012250273

PATIENT
  Sex: Male

DRUGS (3)
  1. GLIPIZIDE [Suspect]
     Dosage: UNK
  2. METFORMIN [Suspect]
     Dosage: UNK
  3. VICTOZA [Suspect]
     Dosage: 1.2 mg dose

REACTIONS (4)
  - Blood glucose fluctuation [Unknown]
  - Abdominal discomfort [Unknown]
  - Abdominal pain lower [Unknown]
  - Nausea [Unknown]
